FAERS Safety Report 4553724-X (Version None)
Quarter: 2004Q4

REPORT INFORMATION
  Report Type: 
  Country: None (occurrence: None)
  Receive Date: 20041227
  Receipt Date: 20040909
  Transmission Date: 20050328
  Serious: No
  Sender: FDA-Public Use
  Company Number: 04P-163-0272790-00

PATIENT
  Age: 60 Year
  Sex: Female
  Weight: 86.1834 kg

DRUGS (6)
  1. HUMIRA [Suspect]
     Indication: RHEUMATOID ARTHRITIS
     Dosage: 40 MG, 1 IN 2 WK, SUBCUTANEOUS
     Route: 058
     Dates: start: 20030101
  2. BENICAR [Concomitant]
  3. ATENOLOL [Concomitant]
  4. ROFECOXIB [Concomitant]
  5. METHOTREXATE SODIUM [Concomitant]
  6. PREDNISONE [Concomitant]

REACTIONS (1)
  - NIGHT SWEATS [None]
